FAERS Safety Report 11690479 (Version 2)
Quarter: 2015Q4

REPORT INFORMATION
  Report Type: Spontaneous
  Country: US (occurrence: US)
  Receive Date: 20151102
  Receipt Date: 20151111
  Transmission Date: 20160304
  Serious: Yes (Other)
  Sender: FDA-Public Use
  Company Number: US-BAYER-2015-451916

PATIENT
  Age: 55 Year
  Sex: Female

DRUGS (1)
  1. CLIMARA PRO [Suspect]
     Active Substance: ESTRADIOL\LEVONORGESTREL
     Indication: POSTMENOPAUSE
     Dosage: UNK
     Route: 062
     Dates: start: 201403

REACTIONS (2)
  - Postmenopausal haemorrhage [None]
  - Product adhesion issue [None]

NARRATIVE: CASE EVENT DATE: 2015
